FAERS Safety Report 8465331-7 (Version None)
Quarter: 2012Q2

REPORT INFORMATION
  Report Type: 
  Country: None (occurrence: None)
  Receive Date: 20120626
  Receipt Date: 20120613
  Transmission Date: 20120825
  Serious: No
  Sender: FDA-Public Use
  Company Number: US-ASTRAZENECA-2012SE40051

PATIENT
  Age: 22 Year
  Sex: Female

DRUGS (27)
  1. METOPROLOL TARTRATE [Concomitant]
     Indication: HYPERTENSION
  2. CALCITRIOL [Concomitant]
     Indication: HYPOCALCAEMIA
  3. ALBUTEROL [Concomitant]
     Indication: ASTHMA
  4. OLUX E [Concomitant]
     Indication: PSORIASIS
  5. VITAMIN D [Concomitant]
  6. CLOBETASOL PROPIONATE [Concomitant]
  7. ZOMIG [Suspect]
     Route: 048
  8. RELPAX [Concomitant]
     Indication: MIGRAINE
  9. CICLOPIROX [Concomitant]
     Indication: PSORIASIS
  10. NASONEX [Concomitant]
  11. ACIDOPHILUS [Concomitant]
  12. LACTAID [Concomitant]
  13. SUPER VIT B COMPLEX [Concomitant]
  14. ECHNICEA [Concomitant]
  15. ADDERALL 5 [Concomitant]
     Indication: ATTENTION DEFICIT/HYPERACTIVITY DISORDER
  16. LEVOXYL [Concomitant]
     Indication: HYPOTHYROIDISM
  17. MULTI-VITAMIN [Concomitant]
  18. CLOBETASOL PROPIONATE GEL [Concomitant]
  19. GLUCOPHAGE [Concomitant]
     Indication: BLOOD INSULIN INCREASED
  20. BYETTA [Concomitant]
     Indication: BLOOD INSULIN INCREASED
  21. FLUOXETINE [Concomitant]
  22. OTC CLARITAN [Concomitant]
     Indication: MULTIPLE ALLERGIES
  23. DESONIDE [Concomitant]
  24. SINGULAIR [Concomitant]
     Indication: ASTHMA
  25. DULERA [Concomitant]
     Indication: ASTHMA
  26. OMNICEF [Concomitant]
  27. AIRBORNE [Concomitant]

REACTIONS (2)
  - HEARING IMPAIRED [None]
  - URTICARIA [None]
